FAERS Safety Report 16118821 (Version 4)
Quarter: 2020Q2

REPORT INFORMATION
  Report Type: Spontaneous
  Country: US (occurrence: US)
  Receive Date: 20190326
  Receipt Date: 20200401
  Transmission Date: 20200713
  Serious: Yes (Other)
  Sender: FDA-Public Use
  Company Number: US-SPARK THERAPEUTICS, INC.-US-SPK-19-00008

PATIENT
  Age: 53 Year
  Sex: Male

DRUGS (4)
  1. LUXTURNA [Suspect]
     Active Substance: VORETIGENE NEPARVOVEC-RZYL
     Indication: RETINAL DYSTROPHY
     Dosage: IN THE RIGHT EYE
     Dates: start: 20181206, end: 20181206
  2. LUXTURNA [Suspect]
     Active Substance: VORETIGENE NEPARVOVEC-RZYL
     Dosage: IN THE LEFT EYE
     Dates: start: 20181213, end: 20181213
  3. LUXTURNA [Suspect]
     Active Substance: VORETIGENE NEPARVOVEC-RZYL
     Indication: RETINAL DYSTROPHY
     Dosage: TO THE RIGHT EYE
     Route: 031
     Dates: start: 20181206, end: 20181206
  4. LUXTURNA [Suspect]
     Active Substance: VORETIGENE NEPARVOVEC-RZYL
     Dosage: TO THE LEFT EYE
     Route: 031
     Dates: start: 20181213, end: 20181213

REACTIONS (3)
  - Device dislocation [Recovered/Resolved]
  - Rhegmatogenous retinal detachment [Recovered/Resolved]
  - Retinal tear [Recovered/Resolved]

NARRATIVE: CASE EVENT DATE: 20190116
